FAERS Safety Report 12849186 (Version 3)
Quarter: 2016Q4

REPORT INFORMATION
  Report Type: Spontaneous
  Country: US (occurrence: US)
  Receive Date: 20161014
  Receipt Date: 20161227
  Transmission Date: 20170207
  Serious: Yes (Other)
  Sender: FDA-Public Use
  Company Number: US-BAYER-2016-197615

PATIENT
  Age: 35 Year
  Sex: Female

DRUGS (3)
  1. MIRENA [Suspect]
     Active Substance: LEVONORGESTREL
     Indication: CONTRACEPTION
     Dosage: 20 MCG/24HR, CONT
     Route: 015
     Dates: start: 20110811, end: 201610
  2. MIRENA [Suspect]
     Active Substance: LEVONORGESTREL
     Dosage: UNK
  3. CYTOTEC [Concomitant]
     Active Substance: MISOPROSTOL

REACTIONS (4)
  - Device difficult to use [None]
  - Complication of device removal [None]
  - Device expulsion [None]
  - Device breakage [None]

NARRATIVE: CASE EVENT DATE: 201610
